FAERS Safety Report 10521880 (Version 2)
Quarter: 2014Q4

REPORT INFORMATION
  Report Type: Spontaneous
  Country: FR (occurrence: FR)
  Receive Date: 20141016
  Receipt Date: 20141016
  Transmission Date: 20150528
  Serious: Yes (Other)
  Sender: FDA-Public Use
  Company Number: PHHY2014FR129491

PATIENT
  Age: 46 Year
  Sex: Female

DRUGS (2)
  1. ESCITALOPRAM SANDOZ [Concomitant]
     Indication: DEPRESSION
     Route: 065
  2. LETROZOLE SANDOZ [Suspect]
     Active Substance: LETROZOLE
     Indication: BREAST CANCER
     Route: 065

REACTIONS (6)
  - Paraesthesia [Unknown]
  - Hot flush [Unknown]
  - Myalgia [Unknown]
  - Asthenia [Unknown]
  - Vertigo [Unknown]
  - Gastrointestinal disorder [Unknown]
